FAERS Safety Report 10648453 (Version 2)
Quarter: 2015Q1

REPORT INFORMATION
  Report Type: Report from Study
  Country: US (occurrence: US)
  Receive Date: 20141212
  Receipt Date: 20150130
  Transmission Date: 20150720
  Serious: Yes (Death, Other)
  Sender: FDA-Public Use
  Company Number: PHEH2014US024816

PATIENT
  Sex: Female

DRUGS (1)
  1. EXJADE [Suspect]
     Active Substance: DEFERASIROX
     Indication: IRON OVERLOAD
     Dosage: 500 MG, QD
     Route: 048

REACTIONS (4)
  - Respiratory failure [Fatal]
  - Cardio-respiratory arrest [Fatal]
  - Diabetes mellitus [Unknown]
  - Pneumonia [Fatal]
